FAERS Safety Report 22162106 (Version 1)
Quarter: 2023Q1

REPORT INFORMATION
  Report Type: Spontaneous
  Country: CN (occurrence: CN)
  Receive Date: 20230331
  Receipt Date: 20230331
  Transmission Date: 20230418
  Serious: Yes (Other)
  Sender: FDA-Public Use
  Company Number: CN-009507513-2303CHN010695

PATIENT
  Age: 78 Year
  Sex: Male
  Weight: 55 kg

DRUGS (8)
  1. KEYTRUDA [Suspect]
     Active Substance: PEMBROLIZUMAB
     Indication: Rectal cancer
     Dosage: 100 MG, ONCE, IV DRIP
     Route: 041
     Dates: start: 20230302, end: 20230302
  2. XELODA [Suspect]
     Active Substance: CAPECITABINE
     Indication: Rectal cancer
     Dosage: 1 G, BID, ORAL
     Route: 048
     Dates: start: 20230302, end: 20230302
  3. OXALIPLATIN [Suspect]
     Active Substance: OXALIPLATIN
     Indication: Rectal cancer
     Dosage: 130 MG, ONCE, IV DRIP
     Route: 041
     Dates: start: 20230302, end: 20230302
  4. EPIRUBICIN [Suspect]
     Active Substance: EPIRUBICIN
     Indication: Rectal cancer
     Dosage: 40 MG, ONCE, IV DRIP
     Route: 041
     Dates: start: 20230302, end: 20230302
  5. AVASTIN [Suspect]
     Active Substance: BEVACIZUMAB
     Indication: Rectal cancer
     Dosage: 400 MG, ONCE, IV DRIP
     Route: 041
     Dates: start: 20230302, end: 20230302
  6. SODIUM CHLORIDE [Concomitant]
     Active Substance: SODIUM CHLORIDE
     Indication: Rectal cancer
     Dosage: 100 ML, ONCE
     Route: 041
     Dates: start: 20230302, end: 20230302
  7. SODIUM CHLORIDE [Concomitant]
     Active Substance: SODIUM CHLORIDE
     Dosage: 100 ML, ONCE
     Route: 043
     Dates: start: 20230302, end: 20230302
  8. DEXTROSE [Concomitant]
     Active Substance: DEXTROSE
     Indication: Rectal cancer
     Dosage: 500 MG, ONCE, IV DRIP
     Route: 041
     Dates: start: 20230302, end: 20230302

REACTIONS (2)
  - Myelosuppression [Unknown]
  - Underdose [Unknown]

NARRATIVE: CASE EVENT DATE: 20230302
